FAERS Safety Report 6086368-1 (Version None)
Quarter: 2009Q1

REPORT INFORMATION
  Report Type: 
  Country: None (occurrence: None)
  Receive Date: 20090220
  Receipt Date: 20090210
  Transmission Date: 20090719
  Serious: Yes (Other)
  Sender: FDA-Public Use
  Company Number: CA-JNJCH-2009004165

PATIENT
  Sex: Female

DRUGS (1)
  1. LUBRIDERM UNSCENTED [Suspect]
     Indication: DRY SKIN PROPHYLAXIS
     Dosage: TEXT:UNSPECIFIED ONCE
     Route: 061
     Dates: start: 20090203, end: 20090203

REACTIONS (4)
  - APPLICATION SITE EXFOLIATION [None]
  - DRY SKIN [None]
  - HYPERSENSITIVITY [None]
  - SKIN DISCOLOURATION [None]
